FAERS Safety Report 17576295 (Version 1)
Quarter: 2020Q1

REPORT INFORMATION
  Report Type: Spontaneous
  Country: SA (occurrence: SA)
  Receive Date: 20200324
  Receipt Date: 20200324
  Transmission Date: 20200409
  Serious: Yes (Other)
  Sender: FDA-Public Use
  Company Number: SA-MYE-2019M1087538AA

PATIENT
  Age: 22 Year
  Sex: Female

DRUGS (5)
  1. MERCAPTAMINE [Suspect]
     Active Substance: CYSTEAMINE
     Indication: CYSTINOSIS
     Dosage: UNK
  2. LEVOTHYROXINE. [Concomitant]
     Active Substance: LEVOTHYROXINE
     Dosage: UNK, QD
  3. MERCAPTAMINE HYDROCHLORIDE [Suspect]
     Active Substance: CYSTEAMINE HYDROCHLORIDE
     Indication: CYSTINOSIS
     Dosage: UNK, Q2H IN BOTH EYES
     Route: 047
  4. MERCAPTAMINE [Concomitant]
     Active Substance: CYSTEAMINE
     Dosage: UNK
  5. CYSTAGON [Suspect]
     Active Substance: CYSTEAMINE BITARTRATE
     Indication: CYSTINOSIS
     Dosage: UNK
     Route: 048
     Dates: start: 2010

REACTIONS (7)
  - Angle closure glaucoma [Unknown]
  - Blindness unilateral [Unknown]
  - Treatment noncompliance [Unknown]
  - Uveitis [Unknown]
  - Retinal disorder [Unknown]
  - Inappropriate schedule of product administration [Unknown]
  - General physical health deterioration [Unknown]
